FAERS Safety Report 13521284 (Version 3)
Quarter: 2017Q3

REPORT INFORMATION
  Report Type: Spontaneous
  Country: US (occurrence: US)
  Receive Date: 20170508
  Receipt Date: 20170705
  Transmission Date: 20171127
  Serious: No
  Sender: FDA-Public Use
  Company Number: US-PFIZER INC-2017192994

PATIENT
  Age: 70 Year
  Sex: Female
  Weight: 61.22 kg

DRUGS (3)
  1. ESTRADIOL W/NORETHISTERONE ACETATE [Suspect]
     Active Substance: ESTRADIOL\NORETHINDRONE ACETATE
     Dosage: 1MG/0.5 MG,ONCE A DAY
  2. ESTRADIOL/MEDROXYPROGESTERONE ACETATE [Suspect]
     Active Substance: ESTRADIOL\MEDROXYPROGESTERONE ACETATE
     Indication: HORMONE REPLACEMENT THERAPY
     Dosage: 1 MG TO 2.5 MG
     Dates: start: 20170310, end: 2017
  3. ESTRADIOL W/NORETHISTERONE ACETATE [Suspect]
     Active Substance: ESTRADIOL\NORETHINDRONE ACETATE
     Indication: HORMONE REPLACEMENT THERAPY
     Dosage: UNK
     Dates: start: 20150623

REACTIONS (4)
  - Anxiety [Unknown]
  - Hot flush [Unknown]
  - Depression [Unknown]
  - Chills [Unknown]
